FAERS Safety Report 8209720-4 (Version None)
Quarter: 2012Q1

REPORT INFORMATION
  Report Type: 
  Country: None (occurrence: None)
  Receive Date: 20120314
  Receipt Date: 20120306
  Transmission Date: 20120608
  Serious: Yes (Other)
  Sender: FDA-Public Use
  Company Number: US-INCYTE CORPORATION-2012IN000335

PATIENT
  Sex: Male

DRUGS (3)
  1. ASPIRIN [Concomitant]
     Dosage: UNK
  2. ANAGRELIDE HCL [Concomitant]
     Dosage: UNK
  3. JAKAFI [Suspect]
     Indication: MYELOFIBROSIS
     Dosage: 10 MG, BID
     Route: 048
     Dates: start: 20120301, end: 20120301

REACTIONS (1)
  - HAEMOPTYSIS [None]
